FAERS Safety Report 15776550 (Version 2)
Quarter: 2019Q1

REPORT INFORMATION
  Report Type: Report from Study
  Country: AU (occurrence: AU)
  Receive Date: 20181231
  Receipt Date: 20190110
  Transmission Date: 20190417
  Serious: Yes (Death)
  Sender: FDA-Public Use
  Company Number: AU-PFIZER INC-2018525736

PATIENT

DRUGS (3)
  1. ASPIRIN (E.C.) [Suspect]
     Active Substance: ASPIRIN
     Dosage: 500 MG, UNK (INTRAOPERATIVE)
     Route: 042
  2. HEPARIN SODIUM. [Suspect]
     Active Substance: HEPARIN SODIUM
     Indication: SUBARACHNOID HAEMORRHAGE
     Dosage: UNK (INFUSION, POSTOPERATIVELY, 5-7 DAYS)
  3. ASPIRIN (E.C.) [Suspect]
     Active Substance: ASPIRIN
     Indication: SUBARACHNOID HAEMORRHAGE
     Dosage: UNK, 1X/DAY (100-150 MG)
     Route: 048

REACTIONS (1)
  - Ruptured cerebral aneurysm [Fatal]
